FAERS Safety Report 15894918 (Version 1)
Quarter: 2019Q1

REPORT INFORMATION
  Report Type: Spontaneous
  Country: US (occurrence: US)
  Receive Date: 20190109
  Receipt Date: 20190109
  Transmission Date: 20190417
  Serious: Yes (Death, Hospitalization, Other)
  Sender: FDA-Public Use
  Company Number: None

PATIENT
  Age: 61 Year
  Sex: Male
  Weight: 64.86 kg

DRUGS (15)
  1. METALAZONE [Concomitant]
  2. MORPHINE 35MG 2/DAY [Concomitant]
  3. COREG 6.25MG 2/DAY [Concomitant]
  4. DIOVAN [Suspect]
     Active Substance: VALSARTAN
     Indication: BLOOD PRESSURE INCREASED
     Dosage: ?          QUANTITY:1 DF DOSAGE FORM;?
     Route: 048
     Dates: start: 20121130, end: 20140826
  5. K-LOR 10MG [Concomitant]
  6. ATAVAN 1MG 3/DAY [Concomitant]
  7. SPIRONOLACTONE 25MG 1/DAY [Concomitant]
  8. DIOVAN 80MG 1/DAY [Concomitant]
  9. PREVACID 1/DAY [Concomitant]
  10. MED DEVICE- BOSTON SCIENTIFIC [Concomitant]
  11. COQ 10 X 2 [Concomitant]
  12. MULTI VITAMIN 1/DAY [Concomitant]
  13. SENNA [Concomitant]
     Active Substance: SENNA LEAF\SENNOSIDES\SENNOSIDES A AND B
  14. ASPIRIN 1/DAY [Concomitant]
  15. LASIX 40MG 2/DAY [Concomitant]

REACTIONS (1)
  - Hepatic cancer [None]

NARRATIVE: CASE EVENT DATE: 20130813
